FAERS Safety Report 7910077-4 (Version None)
Quarter: 2011Q4

REPORT INFORMATION
  Report Type: 
  Country: None (occurrence: None)
  Receive Date: 20111111
  Receipt Date: 20111027
  Transmission Date: 20120403
  Serious: Yes (Other)
  Sender: FDA-Public Use
  Company Number: BE-ROCHE-1004912

PATIENT
  Age: 56 Year
  Sex: Male

DRUGS (1)
  1. VEMURAFENIB [Suspect]
     Indication: MALIGNANT MELANOMA
     Dosage: LAST DOSE PRIOR TO SAE:02/OCT/2011
     Route: 048
     Dates: start: 20110928

REACTIONS (1)
  - DISTURBANCE IN ATTENTION [None]
